FAERS Safety Report 22128177 (Version 1)
Quarter: 2023Q1

REPORT INFORMATION
  Report Type: Spontaneous
  Country: US (occurrence: US)
  Receive Date: 20230323
  Receipt Date: 20230323
  Transmission Date: 20230417
  Serious: No
  Sender: FDA-Public Use
  Company Number: US-ALLERGAN-2231468US

PATIENT
  Sex: Female

DRUGS (3)
  1. VRAYLAR [Interacting]
     Active Substance: CARIPRAZINE
     Indication: Product used for unknown indication
  2. DUPIXENT [Suspect]
     Active Substance: DUPILUMAB
     Indication: Product used for unknown indication
     Dosage: 300 MG QOW
     Route: 058
     Dates: start: 20220624
  3. ZYRTEC [Suspect]
     Active Substance: CETIRIZINE HYDROCHLORIDE
     Indication: Product used for unknown indication

REACTIONS (2)
  - Drug interaction [Unknown]
  - Somnolence [Unknown]

NARRATIVE: CASE EVENT DATE: 20220101
